FAERS Safety Report 14246417 (Version 1)
Quarter: 2017Q4

REPORT INFORMATION
  Report Type: Report from Study
  Country: US (occurrence: US)
  Receive Date: 20171204
  Receipt Date: 20171204
  Transmission Date: 20180321
  Serious: Yes (Hospitalization, Other)
  Sender: FDA-Public Use
  Company Number: US-TESARO, INC.-US-2017TSO03975

PATIENT

DRUGS (1)
  1. ZEJULA [Suspect]
     Active Substance: NIRAPARIB
     Indication: OVARIAN CANCER
     Dosage: 300 MG, QD
     Route: 048
     Dates: start: 20171103, end: 20171124

REACTIONS (8)
  - Proctalgia [Unknown]
  - Vomiting [Unknown]
  - Escherichia infection [Not Recovered/Not Resolved]
  - Stomatitis [Unknown]
  - Syncope [Not Recovered/Not Resolved]
  - Drug dose omission [Recovered/Resolved]
  - Constipation [Not Recovered/Not Resolved]
  - Discoloured vomit [Not Recovered/Not Resolved]

NARRATIVE: CASE EVENT DATE: 201711
